FAERS Safety Report 4559648-6 (Version None)
Quarter: 2005Q1

REPORT INFORMATION
  Report Type: 
  Country: None (occurrence: None)
  Receive Date: 20050113
  Receipt Date: 20040917
  Transmission Date: 20050727
  Serious: Yes (Other)
  Sender: FDA-Public Use
  Company Number: 380940

PATIENT
  Sex: Male

DRUGS (1)
  1. FUZEON [Suspect]
     Indication: UNEVALUABLE EVENT
     Dosage: OTHER
     Route: 050
     Dates: start: 20030615, end: 20030615

REACTIONS (2)
  - ACCIDENTAL EXPOSURE [None]
  - ACCIDENTAL NEEDLE STICK [None]
